FAERS Safety Report 11004131 (Version 1)
Quarter: 2015Q2

REPORT INFORMATION
  Report Type: Spontaneous
  Country: CH (occurrence: None)
  Receive Date: 20150407
  Receipt Date: 20150407
  Transmission Date: 20150821
  Serious: Yes (Other)
  Sender: FDA-Public Use
  Company Number: 20150188

PATIENT
  Age: 50 Year
  Sex: Female

DRUGS (1)
  1. FERINJECT [Suspect]
     Active Substance: FERRIC CARBOXYMALTOSE
     Indication: IRON DEFICIENCY
     Dosage: 1000 MG, 1 IN 1 TOTAL, INTRAVENOUS DRIP
     Route: 041
     Dates: start: 20150220, end: 20150220

REACTIONS (1)
  - Presyncope [None]

NARRATIVE: CASE EVENT DATE: 20150220
